FAERS Safety Report 7444168-1 (Version None)
Quarter: 2011Q2

REPORT INFORMATION
  Report Type: 
  Country: None (occurrence: None)
  Receive Date: 20110429
  Receipt Date: 20110118
  Transmission Date: 20111010
  Serious: Yes (Hospitalization)
  Sender: FDA-Public Use
  Company Number: US-BAYER-2011-035195

PATIENT
  Age: 31 Year
  Sex: Female
  Weight: 59.864 kg

DRUGS (8)
  1. TOPAMAX [Concomitant]
     Indication: MIGRAINE
  2. KLONOPIN [Concomitant]
     Indication: ANXIETY
  3. NAPROXEN [Concomitant]
  4. OCELLA [Suspect]
     Indication: CONTRACEPTION
     Dosage: UNK
     Route: 048
     Dates: start: 20090101, end: 20100101
  5. WELLBUTRIN [Concomitant]
     Indication: DEPRESSION
  6. AMBIEN [Concomitant]
     Indication: SLEEP DISORDER THERAPY
  7. TRILEPTAL [Concomitant]
  8. ABILIFY [Concomitant]

REACTIONS (1)
  - CHOLECYSTECTOMY [None]
